FAERS Safety Report 8348217-8 (Version None)
Quarter: 2012Q2

REPORT INFORMATION
  Report Type: 
  Country: None (occurrence: None)
  Receive Date: 20120509
  Receipt Date: 20120224
  Transmission Date: 20120825
  Serious: Yes (Disabling)
  Sender: FDA-Public Use
  Company Number: CN-FRI-1000023065

PATIENT
  Sex: Male
  Weight: 52.5 kg

DRUGS (3)
  1. CEPHRADINE [Concomitant]
     Indication: SKIN INFECTION
     Dosage: 1 GM
     Route: 048
     Dates: start: 20110627, end: 20110701
  2. ROFLUMILAST [Suspect]
     Dosage: 500 MCG
     Route: 048
     Dates: start: 20110612, end: 20110625
  3. ROFLUMILAST [Suspect]
     Dosage: 500 MCG
     Route: 048
     Dates: start: 20110528, end: 20110528

REACTIONS (1)
  - DEAFNESS NEUROSENSORY [None]
